FAERS Safety Report 9296842 (Version 3)
Quarter: 2013Q2

REPORT INFORMATION
  Report Type: Spontaneous
  Country: US (occurrence: US)
  Receive Date: 20130517
  Receipt Date: 20130626
  Transmission Date: 20140414
  Serious: No
  Sender: FDA-Public Use
  Company Number: US-PFIZER INC-2013149078

PATIENT
  Age: 64 Year
  Sex: Female

DRUGS (6)
  1. NEURONTIN [Suspect]
     Indication: HYPOAESTHESIA
     Dosage: 300 MG, DAILY
     Dates: start: 2011, end: 201301
  2. NEURONTIN [Suspect]
     Indication: PARAESTHESIA
     Dosage: 300 MG, 3X/DAY
     Dates: start: 201301, end: 2013
  3. NEURONTIN [Suspect]
     Dosage: 300 MG, DAILY
     Dates: start: 2013
  4. NORVASC [Concomitant]
     Indication: HYPERTENSION
     Dosage: 10 MG, DAILY
     Dates: start: 2012
  5. HYDROCHLOROTHIAZIDE [Concomitant]
     Indication: HYPERTENSION
     Dosage: 12.5 MG, DAILY
     Dates: start: 2008
  6. LISINOPRIL [Concomitant]
     Indication: HYPERTENSION
     Dosage: 10 MG, DAILY
     Dates: start: 2008

REACTIONS (5)
  - Drug ineffective [Unknown]
  - Fibromyalgia [Unknown]
  - Rash generalised [Recovered/Resolved]
  - Back pain [Unknown]
  - Neck pain [Unknown]
